FAERS Safety Report 16106122 (Version 1)
Quarter: 2019Q1

REPORT INFORMATION
  Report Type: Spontaneous
  Country: FR (occurrence: FR)
  Receive Date: 20190322
  Receipt Date: 20190322
  Transmission Date: 20190418
  Serious: Yes (Other)
  Sender: FDA-Public Use
  Company Number: FR-REGULIS-2064414

PATIENT
  Age: 44 Year
  Sex: Female
  Weight: 70 kg

DRUGS (10)
  1. CONTRAMAL (TRAMADOL CHLORHYDRATE) 100MG/2ML, SOLUTION INJECTABLE [Suspect]
     Active Substance: TRAMADOL HYDROCHLORIDE
     Route: 042
     Dates: start: 20190125, end: 20190125
  2. NIMBEX [Suspect]
     Active Substance: CISATRACURIUM BESYLATE
     Route: 042
     Dates: start: 20190125, end: 20190125
  3. METHYLENE BLUE (BLEU DE METHYLENE) [Suspect]
     Active Substance: METHYLENE BLUE
     Indication: LYMPHATIC MAPPING
     Route: 042
     Dates: start: 20190125, end: 20190125
  4. SUFENTANIL [Suspect]
     Active Substance: SUFENTANIL
     Route: 042
     Dates: start: 20190125, end: 20190125
  5. BETADINE [Suspect]
     Active Substance: POVIDONE-IODINE
     Route: 003
     Dates: start: 20190125, end: 20190125
  6. CEFAZOLINE [Suspect]
     Active Substance: CEFAZOLIN SODIUM
     Route: 042
     Dates: start: 20190125, end: 20190125
  7. PERFALGAN [Suspect]
     Active Substance: ACETAMINOPHEN
     Route: 042
     Dates: start: 20190125, end: 20190125
  8. DEXAMETHASONE. [Suspect]
     Active Substance: DEXAMETHASONE
     Route: 042
     Dates: start: 20190125, end: 20190125
  9. PROPOFOL. [Suspect]
     Active Substance: PROPOFOL
     Route: 042
     Dates: start: 20190125, end: 20190125
  10. ACUPAN [Suspect]
     Active Substance: NEFOPAM HYDROCHLORIDE
     Route: 042
     Dates: start: 20190125, end: 20190125

REACTIONS (2)
  - Rash generalised [Recovered/Resolved]
  - Off label use [Recovered/Resolved]

NARRATIVE: CASE EVENT DATE: 20190125
